FAERS Safety Report 6088569-5 (Version None)
Quarter: 2009Q1

REPORT INFORMATION
  Report Type: 
  Country: None (occurrence: None)
  Receive Date: 20090224
  Receipt Date: 20090212
  Transmission Date: 20090719
  Serious: Yes (Hospitalization)
  Sender: FDA-Public Use
  Company Number: BR-BIOGENIDEC-2008BI027103

PATIENT
  Age: 42 Year
  Sex: Female

DRUGS (6)
  1. AVONEX [Suspect]
     Indication: MULTIPLE SCLEROSIS
     Route: 030
     Dates: start: 20050101, end: 20071001
  2. AVONEX [Suspect]
     Route: 030
     Dates: start: 20080301, end: 20081016
  3. AVONEX [Suspect]
     Route: 030
  4. OSTEONUTRI [Concomitant]
     Indication: OSTEOPOROSIS PROPHYLAXIS
  5. SELOKEN [Concomitant]
     Indication: ARRHYTHMIA
  6. NORIPURUM [Concomitant]
     Indication: ANAEMIA

REACTIONS (10)
  - BALANCE DISORDER [None]
  - GASTRIC OPERATION [None]
  - INFLUENZA LIKE ILLNESS [None]
  - INJECTION SITE PAIN [None]
  - MALNUTRITION [None]
  - MULTIPLE SCLEROSIS RELAPSE [None]
  - NUCLEAR MAGNETIC RESONANCE IMAGING ABNORMAL [None]
  - OSTEOPENIA [None]
  - PAIN [None]
  - PAIN IN EXTREMITY [None]
